FAERS Safety Report 7503116 (Version 3)
Quarter: 2013Q2

REPORT INFORMATION
  Report Type: Spontaneous
  Country: US (occurrence: None)
  Receive Date: 20100601
  Receipt Date: 20121130
  Transmission Date: 20140414
  Serious: Yes (Hospitalization, Other)
  Sender: FDA-Public Use
  Company Number: US200910005442

PATIENT
  Sex: Female

DRUGS (9)
  1. BYETTA [Suspect]
  2. EXENATIDE (EXENATIDE PEN UNKNOWN STRENGTH) [Concomitant]
  3. MAALOX (ALGELDRATE, MAGNESIUM HYDROXIDE) [Concomitant]
  4. GLUCOPHAGE [Concomitant]
  5. ACTOS [Concomitant]
  6. LANTUS [Concomitant]
  7. LIPITOR [Concomitant]
  8. AVAPRO [Concomitant]
  9. TYLENOL (PARACETAMOL) [Concomitant]

REACTIONS (2)
  - RENAL FAILURE [None]
  - OFF LABEL USE [None]
